FAERS Safety Report 9817984 (Version 3)
Quarter: 2014Q1

REPORT INFORMATION
  Report Type: Report from Study
  Country: RU (occurrence: RU)
  Receive Date: 20140115
  Receipt Date: 20140225
  Transmission Date: 20141002
  Serious: Yes (Death, Hospitalization, Other)
  Sender: FDA-Public Use
  Company Number: PHHO2012RU007209

PATIENT
  Age: 38 Year
  Sex: Female
  Weight: 68 kg

DRUGS (14)
  1. NEORAL [Suspect]
     Indication: RENAL TRANSPLANT
     Dosage: 200 MG, UNK
     Dates: start: 20111006, end: 20140227
  2. PROGRAF [Suspect]
     Indication: RENAL TRANSPLANT
     Dosage: 5 MG, BID
     Route: 048
     Dates: start: 20120305
  3. MYFORTIC [Suspect]
     Indication: RENAL TRANSPLANT
     Dosage: 1440 MG, UNK
     Dates: start: 20111007
  4. MYFORTIC [Suspect]
     Dosage: 1440 MG, BID
     Dates: end: 20140227
  5. MYFORTIC [Suspect]
     Dosage: UNK
     Dates: start: 20120413, end: 20120416
  6. PREDNISOLON [Concomitant]
     Indication: RENAL TRANSPLANT
     Dosage: 15 MG, UNK
     Dates: start: 20111007, end: 20140227
  7. PREDNISOLON [Concomitant]
     Dosage: UNK
     Dates: start: 20120413
  8. EGILOK [Concomitant]
     Indication: HYPERTENSION
     Dosage: 25 MG, BID
     Dates: start: 20111004, end: 20120416
  9. AMLODIPINE [Concomitant]
     Indication: HYPERTENSION
     Dosage: UNK
     Dates: end: 20110202
  10. OMEPRAZOLE [Concomitant]
     Indication: PROPHYLAXIS
     Dosage: UNK
     Dates: end: 20120202
  11. CURANTYL [Concomitant]
     Indication: PROPHYLAXIS
     Dosage: UNK
     Dates: end: 20120202
  12. METHYLPRED [Concomitant]
     Indication: IMMUNOSUPPRESSANT DRUG THERAPY
     Dosage: 4 MG, BID
     Dates: start: 20111007
  13. MONOPRIL [Concomitant]
     Indication: HYPERTENSION
     Dosage: 10 MG, QD
     Dates: start: 20120220, end: 20120416
  14. CORONAL//AMIODARONE HYDROCHLORIDE [Concomitant]
     Indication: HYPERTENSION
     Dosage: 5 MG, QD
     Dates: start: 20120228

REACTIONS (5)
  - Kidney transplant rejection [Fatal]
  - Endocarditis [Fatal]
  - Pulmonary oedema [Fatal]
  - Hypertension [Recovered/Resolved]
  - Leukopenia [Recovered/Resolved]
